FAERS Safety Report 9486344 (Version 1)
Quarter: 2013Q3

REPORT INFORMATION
  Report Type: Report from Study
  Country: SE (occurrence: SE)
  Receive Date: 20130829
  Receipt Date: 20130829
  Transmission Date: 20140515
  Serious: Yes (Death, Life-Threatening, Other)
  Sender: FDA-Public Use
  Company Number: SE-ASTELLAS-2013EU007320

PATIENT
  Age: 62 Year
  Sex: Male

DRUGS (6)
  1. TACROLIMUS SYSTEMIC [Suspect]
     Indication: PROPHYLAXIS AGAINST GRAFT VERSUS HOST DISEASE
     Dosage: UNK
     Route: 065
  2. SIROLIMUS [Suspect]
     Indication: PROPHYLAXIS AGAINST GRAFT VERSUS HOST DISEASE
     Dosage: UNK
     Route: 065
  3. PREDNISOLONE [Concomitant]
     Dosage: 2 MG/KG, UNKNOWN/D
     Route: 065
  4. BUDESONIDE [Concomitant]
     Dosage: UNK
     Route: 065
  5. FLUDARABINE [Concomitant]
     Dosage: UNK
     Route: 065
  6. CYCLOPHOSPHAMIDE [Concomitant]
     Dosage: 60 MG, UNKNOWN/D
     Route: 065

REACTIONS (6)
  - Drug ineffective for unapproved indication [Unknown]
  - Cerebral haemorrhage [Fatal]
  - Bronchopneumonia [Fatal]
  - Pneumonia klebsiella [Unknown]
  - Septic shock [Unknown]
  - Graft versus host disease [Unknown]
